FAERS Safety Report 18707033 (Version 8)
Quarter: 2021Q1

REPORT INFORMATION
  Report Type: Report from Study
  Country: CN (occurrence: CN)
  Receive Date: 20210106
  Receipt Date: 20210125
  Transmission Date: 20210419
  Serious: Yes (Hospitalization)
  Sender: FDA-Public Use
  Company Number: CN-EISAI MEDICAL RESEARCH-EC-2021-086107

PATIENT
  Age: 54 Year
  Sex: Female
  Weight: 72.5 kg

DRUGS (17)
  1. PEMBROLIZUMAB. [Suspect]
     Active Substance: PEMBROLIZUMAB
     Indication: ENDOMETRIAL CANCER
     Route: 041
     Dates: start: 20201021, end: 20201021
  2. LORATADINE. [Concomitant]
     Active Substance: LORATADINE
     Dates: start: 20201217
  3. AMLODIPINE PLUS VALSARTAN [Concomitant]
     Dates: start: 20200822
  4. BENZALKONIUM CHLORIDE. [Concomitant]
     Active Substance: BENZALKONIUM CHLORIDE
     Dates: start: 20201021
  5. MAGNESIUM SULFATE. [Concomitant]
     Active Substance: MAGNESIUM SULFATE
     Dates: start: 20201208, end: 20201208
  6. PYRIDOXINE [Concomitant]
     Active Substance: PYRIDOXINE
     Dates: start: 20201217, end: 20201217
  7. PEMBROLIZUMAB. [Suspect]
     Active Substance: PEMBROLIZUMAB
     Indication: ENDOMETRIAL CANCER RECURRENT
     Route: 041
     Dates: start: 20200930, end: 20200930
  8. METOPROLOL SUCCINATE. [Concomitant]
     Active Substance: METOPROLOL SUCCINATE
     Dates: start: 20201001
  9. CEFTIZOXIME SODIUM [Concomitant]
     Active Substance: CEFTIZOXIME SODIUM
     Dates: start: 20201208, end: 20201208
  10. CALCIUM GLUCONATE. [Concomitant]
     Active Substance: CALCIUM GLUCONATE
     Dates: start: 20201217, end: 20201217
  11. LEVOFLOXACIN LACTATE + SODIUM CHLORIDE [Concomitant]
     Dates: start: 20201208, end: 20201208
  12. OMEPRAZOLE SODIUM [Concomitant]
     Active Substance: OMEPRAZOLE SODIUM
     Dates: start: 20201208, end: 20201208
  13. MAGENTA [Concomitant]
     Dates: start: 20201208, end: 20201208
  14. FLURBIPROFEN. [Concomitant]
     Active Substance: FLURBIPROFEN
     Dates: start: 20201208, end: 20201208
  15. LENVATINIB [Suspect]
     Active Substance: LENVATINIB
     Indication: ENDOMETRIAL CANCER RECURRENT
     Route: 048
     Dates: start: 20200930, end: 20201112
  16. COMPOUND RESERPINE [Concomitant]
     Dates: start: 20201001
  17. LENVATINIB [Suspect]
     Active Substance: LENVATINIB
     Indication: ENDOMETRIAL CANCER
     Route: 048
     Dates: start: 20201120, end: 20201215

REACTIONS (1)
  - Pneumonitis [Not Recovered/Not Resolved]

NARRATIVE: CASE EVENT DATE: 20201221
